FAERS Safety Report 17090211 (Version 1)
Quarter: 2019Q4

REPORT INFORMATION
  Report Type: Spontaneous
  Country: US (occurrence: US)
  Receive Date: 20191129
  Receipt Date: 20191129
  Transmission Date: 20200122
  Serious: No
  Sender: FDA-Public Use
  Company Number: US-UCBSA-2018018473

PATIENT
  Age: 47 Year
  Sex: Female

DRUGS (2)
  1. CIMZIA [Suspect]
     Active Substance: CERTOLIZUMAB PEGOL
     Indication: PRODUCT USED FOR UNKNOWN INDICATION
     Dosage: 400 MG, EV 2 WEEKS(QOW)
     Dates: start: 20180315, end: 20180331
  2. CIMZIA [Suspect]
     Active Substance: CERTOLIZUMAB PEGOL
     Dosage: 200 MG, UNK
     Dates: start: 20180414

REACTIONS (4)
  - Abdominal discomfort [Unknown]
  - Diarrhoea [Unknown]
  - Influenza like illness [Unknown]
  - Off label use [Unknown]

NARRATIVE: CASE EVENT DATE: 20180315
